FAERS Safety Report 11801231 (Version 1)
Quarter: 2015Q4

REPORT INFORMATION
  Report Type: Spontaneous
  Country: GB (occurrence: GB)
  Receive Date: 20151204
  Receipt Date: 20151204
  Transmission Date: 20160305
  Serious: Yes (Hospitalization)
  Sender: FDA-Public Use
  Company Number: GB-ACTAVIS-2015-26139

PATIENT
  Age: 86 Year
  Sex: Male

DRUGS (2)
  1. AMITRIPTYLINE [Suspect]
     Active Substance: AMITRIPTYLINE
     Indication: PRODUCT USED FOR UNKNOWN INDICATION
     Dosage: 10-20 MG AT NIGHT, PRN
     Route: 048
     Dates: start: 20151026
  2. ACYCLOVIR (UNKNOWN) [Suspect]
     Active Substance: ACYCLOVIR
     Indication: HERPES ZOSTER
     Dosage: 800 MG, 5 TIMES A DAY
     Route: 048

REACTIONS (3)
  - Confusional state [Unknown]
  - Incorrect dose administered [Unknown]
  - Encephalitis [Unknown]
